FAERS Safety Report 5210381-7 (Version None)
Quarter: 2007Q1

REPORT INFORMATION
  Report Type: 
  Country: None (occurrence: None)
  Receive Date: 20070117
  Receipt Date: 20070105
  Transmission Date: 20070707
  Serious: Yes (Other)
  Sender: FDA-Public Use
  Company Number: GB-BAYER-200611524BNE

PATIENT
  Age: 41 Year
  Sex: Female

DRUGS (1)
  1. CANESTEN INTERNAL CREAM [Suspect]
     Indication: CANDIDIASIS
     Dates: start: 20061130, end: 20061130

REACTIONS (1)
  - ABORTION SPONTANEOUS [None]
